FAERS Safety Report 10503236 (Version 2)
Quarter: 2015Q1

REPORT INFORMATION
  Report Type: Spontaneous
  Country: US (occurrence: US)
  Receive Date: 20141008
  Receipt Date: 20150113
  Transmission Date: 20150720
  Serious: No
  Sender: FDA-Public Use
  Company Number: US-009507513-1410USA001899

PATIENT
  Sex: Female

DRUGS (4)
  1. SOVALDI [Concomitant]
     Active Substance: SOFOSBUVIR
  2. PEGINTRON [Suspect]
     Active Substance: PEGINTERFERON ALFA-2B
     Indication: HEPATITIS C
     Dosage: 80 MICROGRAM/EVERY WEEK
     Route: 058
     Dates: start: 20140911
  3. RIBAVIRIN. [Suspect]
     Active Substance: RIBAVIRIN
  4. VITAMIN D [Concomitant]
     Active Substance: CHOLECALCIFEROL

REACTIONS (2)
  - Insomnia [Not Recovered/Not Resolved]
  - Metrorrhagia [Not Recovered/Not Resolved]

NARRATIVE: CASE EVENT DATE: 2014
